FAERS Safety Report 11286853 (Version 2)
Quarter: 2015Q3

REPORT INFORMATION
  Report Type: Not Available
  Country: FR (occurrence: FR)
  Receive Date: 20150721
  Receipt Date: 20150806
  Transmission Date: 20151125
  Serious: Yes (Hospitalization)
  Sender: FDA-Public Use
  Company Number: FR-BEH-2015052503

PATIENT
  Age: 55 Year
  Sex: Male

DRUGS (13)
  1. PRIVIGEN [Suspect]
     Active Substance: HUMAN IMMUNOGLOBULIN G
     Dosage: MONTHLY COURSES DIVIDED IN TWO DAYS; TOTAL DOSE: 50 G/DAY; 2 VIALS OF 20G
     Route: 042
     Dates: start: 20150625, end: 20150627
  2. ATENOLOL. [Concomitant]
     Active Substance: ATENOLOL
     Route: 048
  3. ENDOXAN [Suspect]
     Active Substance: CYCLOPHOSPHAMIDE
     Route: 042
     Dates: start: 20150527
  4. ENDOXAN [Suspect]
     Active Substance: CYCLOPHOSPHAMIDE
     Dosage: LYOPHILISAT FOR INJECTION, 35.7143 MG (1000 MG,L IN 4 WEEKS)
     Route: 042
     Dates: start: 20150625, end: 20150625
  5. PRIVIGEN [Suspect]
     Active Substance: HUMAN IMMUNOGLOBULIN G
     Indication: DERMATOMYOSITIS
     Dosage: AND 19 FEB 2015, THE PATIENT RECEIVED A DOSE OF PRIVIGEN
     Dates: start: 20150218
  6. PRIVIGEN [Suspect]
     Active Substance: HUMAN IMMUNOGLOBULIN G
     Dosage: MONTHLY COURSES DIVIDED IN 2 DAYS; TOTAL DOSE: 50 G/DAY; 1 VIAL OF 10G
     Route: 042
     Dates: start: 20150625, end: 20150627
  7. CORTANCYL [Concomitant]
     Active Substance: PREDNISONE
     Route: 048
  8. CACIT VITAMIN D [Concomitant]
     Route: 048
  9. KARDEGIC [Concomitant]
     Active Substance: ASPIRIN LYSINE
     Dosage: 160 MG DURING LUNCH; (INCREASED FROM 75 TO 160 MG/D IN MARCH 2015)
     Route: 048
  10. ENDOXAN [Suspect]
     Active Substance: CYCLOPHOSPHAMIDE
     Route: 042
     Dates: start: 20150410
  11. NATISPRAY MOUTHSPRAY [Concomitant]
     Dosage: 0.3 MG/DOSE
     Route: 048
  12. PRIVIGEN [Suspect]
     Active Substance: HUMAN IMMUNOGLOBULIN G
     Dosage: START DATE: SINCE SEPTEMBER 2013,
     Route: 042
  13. PERINDOPRIL [Concomitant]
     Active Substance: PERINDOPRIL
     Route: 048

REACTIONS (6)
  - Ischaemic stroke [Recovering/Resolving]
  - Language disorder [Recovering/Resolving]
  - Hemiparesis [Recovering/Resolving]
  - Mutism [Recovering/Resolving]
  - Hemianopia [Recovering/Resolving]
  - Ischaemic stroke [Recovering/Resolving]

NARRATIVE: CASE EVENT DATE: 201503
